FAERS Safety Report 21492472 (Version 1)
Quarter: 2022Q4

REPORT INFORMATION
  Report Type: Spontaneous
  Country: US (occurrence: US)
  Receive Date: 20221021
  Receipt Date: 20221021
  Transmission Date: 20230113
  Serious: No
  Sender: FDA-Public Use
  Company Number: US-SA-SAC20221017001370

PATIENT
  Sex: Female

DRUGS (5)
  1. DUPIXENT [Suspect]
     Active Substance: DUPILUMAB
     Indication: Dermatitis atopic
     Dosage: 300 MG, QOW
     Route: 058
     Dates: start: 20210316
  2. AZELASTINE [Concomitant]
     Active Substance: AZELASTINE
     Dosage: UNK
  3. DAPSONE [Concomitant]
     Active Substance: DAPSONE
     Dosage: UNK
  4. NASACORT ALLERGY 24HR [Concomitant]
     Active Substance: TRIAMCINOLONE ACETONIDE
     Dosage: UNK
  5. XYZAL [Concomitant]
     Active Substance: LEVOCETIRIZINE DIHYDROCHLORIDE
     Dosage: UNK

REACTIONS (2)
  - Dermatitis atopic [Not Recovered/Not Resolved]
  - Drug ineffective [Unknown]
